FAERS Safety Report 10207334 (Version 1)
Quarter: 2014Q2

REPORT INFORMATION
  Report Type: Spontaneous
  Country: US (occurrence: None)
  Receive Date: 20140529
  Receipt Date: 20140529
  Transmission Date: 20141212
  Serious: Yes (Other)
  Sender: FDA-Public Use
  Company Number: None

PATIENT
  Age: 51 Year
  Sex: Female
  Weight: 56.7 kg

DRUGS (1)
  1. BUPROPION [Suspect]
     Indication: MAJOR DEPRESSION
     Dosage: 1  ONCE DAILY TAKEN BY MOUTH
     Route: 048
     Dates: start: 200710, end: 201401

REACTIONS (1)
  - Weight increased [None]
